FAERS Safety Report 8871013 (Version 4)
Quarter: 2012Q4

REPORT INFORMATION
  Report Type: 
  Country: JP (occurrence: JP)
  Receive Date: 20121029
  Receipt Date: 20121217
  Transmission Date: 20130627
  Serious: Yes (Hospitalization)
  Sender: FDA-Public Use
  Company Number: PHHY2012JP096444

PATIENT
  Age: 78 Year
  Sex: Female
  Weight: 42 kg

DRUGS (6)
  1. ZOMETA [Suspect]
     Indication: BONE LESION
     Dosage: 4 mg per administration
     Route: 041
     Dates: start: 20100106, end: 20120125
  2. BAYASPIRIN [Concomitant]
     Route: 048
  3. MAGMITT [Concomitant]
     Route: 048
  4. ALLOPURINOL [Concomitant]
     Dosage: 100 mg, UNK
     Route: 048
  5. THALED [Concomitant]
     Dosage: 100 mg, UNK
     Route: 048
  6. DECADRAN [Concomitant]
     Dosage: 0.5 mg, UNK
     Route: 048

REACTIONS (6)
  - Osteonecrosis of jaw [Not Recovered/Not Resolved]
  - Pain in jaw [Not Recovered/Not Resolved]
  - Swelling [Not Recovered/Not Resolved]
  - Erythema [Not Recovered/Not Resolved]
  - Paraesthesia [Unknown]
  - Abscess jaw [Unknown]
